FAERS Safety Report 13358997 (Version 2)
Quarter: 2017Q2

REPORT INFORMATION
  Report Type: Not Available
  Country: None (occurrence: US)
  Receive Date: 20170322
  Receipt Date: 20170414
  Transmission Date: 20170830
  Serious: Yes (Hospitalization, Other)
  Sender: FDA-Public Use
  Company Number: US-AKORN-52636

PATIENT
  Age: 76 Year
  Sex: Male

DRUGS (1)
  1. ZIOPTAN [Suspect]
     Active Substance: TAFLUPROST

REACTIONS (6)
  - Dyspnoea [Recovered/Resolved]
  - Musculoskeletal stiffness [Recovered/Resolved]
  - Choking [Recovered/Resolved]
  - Myasthenia gravis [None]
  - Muscular weakness [Recovered/Resolved]
  - Fatigue [Recovered/Resolved]

NARRATIVE: CASE EVENT DATE: 20170216
